FAERS Safety Report 4433220-0 (Version None)
Quarter: 2004Q3

REPORT INFORMATION
  Report Type: 
  Country: None (occurrence: None)
  Receive Date: 20040823
  Receipt Date: 20040805
  Transmission Date: 20050211
  Serious: Yes (Hospitalization)
  Sender: FDA-Public Use
  Company Number: 2004-DE-04294DE

PATIENT
  Age: 15 Year
  Sex: Female

DRUGS (5)
  1. MOBIC [Suspect]
     Dosage: 6 ANZ (NR, 6 TABLETS)
     Route: 048
  2. TRANCOPAL DOLO (FLUPIRTINE MALEATE) (TA) [Suspect]
     Dosage: 1000 MG (100 MG, 10 TABLETS)
     Route: 048
  3. DOGMATIL (SULPIRIDE) (TA) [Suspect]
     Dosage: 750 MG (50 MG, 15 TABLETS)
     Route: 048
  4. PARACETAMOL (PARACETAMOL) (TA) [Suspect]
     Dosage: 1000 MG (500 MG, 2 TABLETS)
     Route: 048
  5. DICLO (TA) [Suspect]
     Dosage: 4 ANZ (NR, 4 TABLETS)
     Route: 048

REACTIONS (2)
  - MULTIPLE DRUG OVERDOSE INTENTIONAL [None]
  - SUICIDE ATTEMPT [None]
